FAERS Safety Report 8307146-6 (Version None)
Quarter: 2012Q2

REPORT INFORMATION
  Report Type: 
  Country: None (occurrence: None)
  Receive Date: 20120424
  Receipt Date: 20120420
  Transmission Date: 20120825
  Serious: Yes (Death)
  Sender: FDA-Public Use
  Company Number: PHHY2012CA015314

PATIENT
  Sex: Female

DRUGS (15)
  1. LASIX [Concomitant]
     Dosage: 60 MG
     Route: 048
  2. FOLIC ACID [Concomitant]
     Dosage: 1 MG, QD
     Route: 048
  3. SPIRIVA [Concomitant]
  4. LIPITOR [Concomitant]
     Dosage: 10 MG, QD
     Route: 048
  5. PROLIA [Concomitant]
     Dosage: 60 MG, EACH 6 MONTHS
  6. VITAMIN D [Concomitant]
     Dosage: 1000 U, QD
  7. OXEZE [Concomitant]
  8. CYMBALTA [Concomitant]
     Dosage: 60 MG,
     Route: 048
  9. SLOW-K [Concomitant]
     Dosage: 2 DF, BID
  10. PREVACID [Concomitant]
     Dosage: 30 MG, BID
     Route: 048
  11. CALCIUM CARBONATE [Concomitant]
     Dosage: 500 MG, BID
     Route: 048
  12. ZOLEDRONOC ACID [Suspect]
     Route: 042
     Dates: start: 20090107
  13. SEPTRA DS [Concomitant]
  14. DEFLAZACORT [Concomitant]
     Dosage: 12 MG,
  15. DURAGESIC-100 [Concomitant]

REACTIONS (3)
  - DEATH [None]
  - RHEUMATOID ARTHRITIS [None]
  - JOINT SWELLING [None]
